FAERS Safety Report 8614802-9 (Version None)
Quarter: 2012Q3

REPORT INFORMATION
  Report Type: 
  Country: None (occurrence: None)
  Receive Date: 20120823
  Receipt Date: 20120730
  Transmission Date: 20120928
  Serious: No
  Sender: FDA-Public Use
  Company Number: US-009507513-1208USA000059

PATIENT

DRUGS (7)
  1. PREDNISOLONE [Concomitant]
  2. TIMOLOL MALEATE [Concomitant]
  3. VIGAMOX [Concomitant]
  4. LEVOTHYROXINE SODIUM [Concomitant]
  5. TRUSOPT [Suspect]
     Dosage: 1 DF, TID
     Route: 047
     Dates: start: 20110101
  6. AZITHROMYCIN [Concomitant]
  7. LANTUS [Concomitant]

REACTIONS (1)
  - VISION BLURRED [None]
